FAERS Safety Report 7368185-5 (Version None)
Quarter: 2011Q1

REPORT INFORMATION
  Report Type: 
  Country: None (occurrence: None)
  Receive Date: 20110323
  Receipt Date: 20110311
  Transmission Date: 20110831
  Serious: Yes (Hospitalization, Other)
  Sender: FDA-Public Use
  Company Number: US-PFIZER INC-2007036645

PATIENT
  Sex: Male

DRUGS (4)
  1. NEURONTIN [Suspect]
     Indication: ANXIETY
  2. NEURONTIN [Suspect]
     Indication: BIPOLAR DISORDER
     Dosage: UNK
  3. DOXEPIN [Concomitant]
  4. CELEXA [Concomitant]

REACTIONS (7)
  - SUICIDAL IDEATION [None]
  - DRUG INEFFECTIVE FOR UNAPPROVED INDICATION [None]
  - THINKING ABNORMAL [None]
  - DEPRESSION [None]
  - MICTURITION DISORDER [None]
  - WEIGHT INCREASED [None]
  - AMNESIA [None]
